FAERS Safety Report 8963054 (Version 1)
Quarter: 2012Q4

REPORT INFORMATION
  Report Type: Report from Study
  Country: FR (occurrence: FR)
  Receive Date: 20121213
  Receipt Date: 20121213
  Transmission Date: 20130627
  Serious: Yes (Other)
  Sender: FDA-Public Use
  Company Number: FR-ABBOTT-12P-056-1017423-00

PATIENT
  Age: 25 Year
  Sex: Female

DRUGS (9)
  1. RITONAVIR [Suspect]
     Indication: HIV INFECTION
     Route: 048
     Dates: start: 20100713, end: 20111108
  2. KALETRA [Suspect]
     Indication: HIV INFECTION
     Route: 048
     Dates: start: 20120220, end: 20120524
  3. PREZISTA [Concomitant]
     Indication: HIV INFECTION
     Route: 048
     Dates: start: 20100713, end: 20111108
  4. TRUVADA [Concomitant]
     Indication: HIV INFECTION
     Route: 048
     Dates: start: 20120524
  5. SELZENTRY [Concomitant]
     Indication: HIV INFECTION
     Route: 048
     Dates: start: 20100713, end: 20111108
  6. ISENTRESS [Concomitant]
     Indication: HIV INFECTION
     Route: 048
     Dates: start: 20120220, end: 20120319
  7. ISENTRESS [Concomitant]
     Route: 048
     Dates: start: 20120524
  8. COMBIVIR [Concomitant]
     Indication: HIV INFECTION
     Route: 048
     Dates: start: 20120319, end: 20120524
  9. EPZICOM [Concomitant]
     Indication: HIV INFECTION
     Route: 048
     Dates: start: 20120220, end: 20120319

REACTIONS (1)
  - Cholestasis of pregnancy [Recovered/Resolved]
